FAERS Safety Report 5244960-8 (Version None)
Quarter: 2007Q1

REPORT INFORMATION
  Report Type: 
  Country: None (occurrence: None)
  Receive Date: 20070221
  Receipt Date: 20070221
  Transmission Date: 20070707
  Serious: Yes (Life-Threatening, Other)
  Sender: FDA-Public Use
  Company Number: None

PATIENT
  Age: 73 Year
  Sex: Female
  Weight: 77.1115 kg

DRUGS (10)
  1. KINERET [Suspect]
     Indication: RHEUMATOID ARTHRITIS
     Dosage: 100 MG ONCE DAY SQ
     Route: 058
     Dates: start: 20021001, end: 20070219
  2. CELEBREX [Concomitant]
  3. PLAQUENIL [Concomitant]
  4. FOSAMAX [Concomitant]
  5. SYNTHROID [Concomitant]
  6. METOPROLOL TARTRATE [Concomitant]
  7. COUMADIN [Concomitant]
  8. ZOLOFT [Concomitant]
  9. VITAMIN D [Concomitant]
  10. FLECAINIDE ACETATE [Concomitant]

REACTIONS (1)
  - LUNG ADENOCARCINOMA [None]
